FAERS Safety Report 6683624-0 (Version None)
Quarter: 2010Q2

REPORT INFORMATION
  Report Type: 
  Country: None (occurrence: None)
  Receive Date: 20100415
  Receipt Date: 20100331
  Transmission Date: 20101027
  Serious: Yes (Hospitalization, Other)
  Sender: FDA-Public Use
  Company Number: US-AMGEN-KDL405862

PATIENT
  Sex: Female

DRUGS (1)
  1. PROCRIT [Suspect]
     Indication: RENAL FAILURE CHRONIC

REACTIONS (6)
  - HAEMOGLOBIN DECREASED [None]
  - HOSPITALISATION [None]
  - INFLAMMATION [None]
  - RENAL FAILURE ACUTE [None]
  - RESPIRATORY FAILURE [None]
  - URINARY TRACT INFECTION [None]
